FAERS Safety Report 15311500 (Version 1)
Quarter: 2018Q3

REPORT INFORMATION
  Report Type: Spontaneous
  Country: US (occurrence: US)
  Receive Date: 20180823
  Receipt Date: 20180823
  Transmission Date: 20181010
  Serious: No
  Sender: FDA-Public Use
  Company Number: US-SILVERGATE PHARMACEUTICALS, INC.-2018SIL00026

PATIENT
  Sex: Female

DRUGS (1)
  1. METHOTREXATE. [Suspect]
     Active Substance: METHOTREXATE
     Dosage: 20 MG, 1X/WEEK
     Route: 048

REACTIONS (8)
  - Energy increased [Unknown]
  - Swelling [Unknown]
  - Feeling hot [Unknown]
  - Pain in extremity [Unknown]
  - Drug effect incomplete [Unknown]
  - Malaise [Unknown]
  - Joint range of motion decreased [Unknown]
  - Arthralgia [Unknown]
